FAERS Safety Report 11547888 (Version 1)
Quarter: 2015Q3

REPORT INFORMATION
  Report Type: Spontaneous
  Country: US (occurrence: US)
  Receive Date: 20150924
  Receipt Date: 20150924
  Transmission Date: 20151125
  Serious: No
  Sender: FDA-Public Use
  Company Number: US-AMNEAL PHARMACEUTICALS-2015AMN00073

PATIENT
  Age: 67 Year
  Sex: Female
  Weight: 58.5 kg

DRUGS (4)
  1. GABAPENTIN. [Suspect]
     Active Substance: GABAPENTIN
     Indication: RESTLESS LEGS SYNDROME
  2. KLONOPIN [Concomitant]
     Active Substance: CLONAZEPAM
  3. LUNESTA [Concomitant]
     Active Substance: ESZOPICLONE
  4. GABAPENTIN. [Suspect]
     Active Substance: GABAPENTIN
     Indication: POST-TRAUMATIC NECK SYNDROME
     Dosage: 1 CAPSULES, 1X/DAY
     Route: 048
     Dates: start: 201404, end: 201412

REACTIONS (2)
  - Pneumonitis [Unknown]
  - Respiratory disorder [Unknown]

NARRATIVE: CASE EVENT DATE: 201409
